FAERS Safety Report 21409265 (Version 1)
Quarter: 2022Q4

REPORT INFORMATION
  Report Type: Report from Study
  Country: CN (occurrence: CN)
  Receive Date: 20221004
  Receipt Date: 20221004
  Transmission Date: 20230113
  Serious: Yes (Hospitalization, Other)
  Sender: FDA-Public Use
  Company Number: CN-GSK-CN2022GSK141511

PATIENT

DRUGS (3)
  1. LAMIVUDINE [Suspect]
     Active Substance: LAMIVUDINE
     Indication: HIV infection
     Dosage: UNK
     Dates: start: 2019
  2. TENOFOVIR DISOPROXIL FUMARATE [Suspect]
     Active Substance: TENOFOVIR DISOPROXIL FUMARATE
     Indication: HIV infection
     Dosage: UNK
     Dates: start: 2019
  3. EFAVIRENZ [Suspect]
     Active Substance: EFAVIRENZ
     Indication: HIV infection
     Dosage: UNK
     Dates: start: 2019

REACTIONS (13)
  - Platelet count decreased [Unknown]
  - Abdominal pain [Unknown]
  - Abdominal distension [Unknown]
  - Non-cirrhotic portal hypertension [Unknown]
  - Splenomegaly [Unknown]
  - Varices oesophageal [Unknown]
  - Portal hypertensive gastropathy [Unknown]
  - Duodenal ulcer [Unknown]
  - Bile duct stone [Unknown]
  - Biliary dilatation [Unknown]
  - Post cholecystectomy syndrome [Unknown]
  - Bile duct stent insertion [Unknown]
  - Hepatic mass [Unknown]

NARRATIVE: CASE EVENT DATE: 20210101
